FAERS Safety Report 8447940-4 (Version None)
Quarter: 2012Q2

REPORT INFORMATION
  Report Type: 
  Country: None (occurrence: None)
  Receive Date: 20120619
  Receipt Date: 20120613
  Transmission Date: 20120825
  Serious: Yes (Other)
  Sender: FDA-Public Use
  Company Number: PHHY2012MX051420

PATIENT
  Sex: Male

DRUGS (3)
  1. TENORETIC 100 [Concomitant]
     Indication: HYPERTENSION
     Dosage: 1 DF, DAILY
     Dates: start: 19980601
  2. EXFORGE [Suspect]
     Indication: HYPERTENSION
     Dosage: 1 DF, DAILY (160 MG VALS AND 5 MG AMLO)
     Dates: start: 20100601
  3. EXFORGE [Suspect]
     Dosage: 2 DF (160 MG VALS AND 5 MG AMLO), DAILY
     Dates: start: 20110801

REACTIONS (3)
  - LIVER DISORDER [None]
  - BLOOD PRESSURE INCREASED [None]
  - NEOPLASM MALIGNANT [None]
